FAERS Safety Report 16416064 (Version 2)
Quarter: 2019Q4

REPORT INFORMATION
  Report Type: Report from Study
  Country: None (occurrence: US)
  Receive Date: 20190611
  Receipt Date: 20191017
  Transmission Date: 20200122
  Serious: Yes (Other)
  Sender: FDA-Public Use
  Company Number: US-ABBVIE-19K-163-2736544-00

PATIENT
  Sex: Female

DRUGS (2)
  1. HUMIRA [Suspect]
     Active Substance: ADALIMUMAB
     Route: 058
     Dates: start: 201907
  2. HUMIRA [Suspect]
     Active Substance: ADALIMUMAB
     Indication: ANKYLOSING SPONDYLITIS
     Route: 058
     Dates: start: 20190322, end: 2019

REACTIONS (9)
  - Musculoskeletal stiffness [Unknown]
  - Fear [Not Recovered/Not Resolved]
  - General symptom [Unknown]
  - Pelvic fluid collection [Not Recovered/Not Resolved]
  - Crohn^s disease [Unknown]
  - Ovarian cyst [Not Recovered/Not Resolved]
  - Hernia [Recovered/Resolved]
  - Pain [Not Recovered/Not Resolved]
  - Loss of personal independence in daily activities [Unknown]

NARRATIVE: CASE EVENT DATE: 2019
